FAERS Safety Report 8080588-2 (Version None)
Quarter: 2012Q1

REPORT INFORMATION
  Report Type: 
  Country: None (occurrence: None)
  Receive Date: 20120130
  Receipt Date: 20120123
  Transmission Date: 20120608
  Serious: Yes (Other)
  Sender: FDA-Public Use
  Company Number: US-PFIZER INC-2011254398

PATIENT
  Sex: Female
  Weight: 56.236 kg

DRUGS (2)
  1. SOLU-MEDROL [Suspect]
     Dosage: 125 MG, SINGLE
     Route: 030
     Dates: start: 20111020, end: 20111020
  2. VITAMIN B-12 [Concomitant]
     Dosage: UNK
     Route: 030
     Dates: start: 20111020

REACTIONS (6)
  - VOMITING [None]
  - TREMOR [None]
  - ASTHENIA [None]
  - NAUSEA [None]
  - LOSS OF CONSCIOUSNESS [None]
  - DYSPNOEA [None]
